FAERS Safety Report 25219300 (Version 1)
Quarter: 2025Q2

REPORT INFORMATION
  Report Type: Spontaneous
  Country: IT (occurrence: IT)
  Receive Date: 20250421
  Receipt Date: 20250421
  Transmission Date: 20250717
  Serious: Yes (Hospitalization)
  Sender: MYLAN
  Company Number: None

PATIENT
  Age: 83 Year
  Sex: Female

DRUGS (52)
  1. ATORVASTATIN [Interacting]
     Active Substance: ATORVASTATIN
     Indication: Hypercholesterolaemia
     Dosage: 10 MILLIGRAM, QD,  10 MG AT 8: 00 PM
     Dates: start: 20240322, end: 20240419
  2. ATORVASTATIN [Interacting]
     Active Substance: ATORVASTATIN
     Dosage: 10 MILLIGRAM, QD,  10 MG AT 8: 00 PM
     Route: 048
     Dates: start: 20240322, end: 20240419
  3. ATORVASTATIN [Interacting]
     Active Substance: ATORVASTATIN
     Dosage: 10 MILLIGRAM, QD,  10 MG AT 8: 00 PM
     Route: 048
     Dates: start: 20240322, end: 20240419
  4. ATORVASTATIN [Interacting]
     Active Substance: ATORVASTATIN
     Dosage: 10 MILLIGRAM, QD,  10 MG AT 8: 00 PM
     Dates: start: 20240322, end: 20240419
  5. SERTRALINE HYDROCHLORIDE [Interacting]
     Active Substance: SERTRALINE HYDROCHLORIDE
     Indication: Depression
     Dosage: 50 MILLIGRAM, QD, 50 MG 1/2 TABLET AT 8:00 AM
     Dates: start: 20240322, end: 20240419
  6. SERTRALINE HYDROCHLORIDE [Interacting]
     Active Substance: SERTRALINE HYDROCHLORIDE
     Dosage: 50 MILLIGRAM, QD, 50 MG 1/2 TABLET AT 8:00 AM
     Route: 048
     Dates: start: 20240322, end: 20240419
  7. SERTRALINE HYDROCHLORIDE [Interacting]
     Active Substance: SERTRALINE HYDROCHLORIDE
     Dosage: 50 MILLIGRAM, QD, 50 MG 1/2 TABLET AT 8:00 AM
     Route: 048
     Dates: start: 20240322, end: 20240419
  8. SERTRALINE HYDROCHLORIDE [Interacting]
     Active Substance: SERTRALINE HYDROCHLORIDE
     Dosage: 50 MILLIGRAM, QD, 50 MG 1/2 TABLET AT 8:00 AM
     Dates: start: 20240322, end: 20240419
  9. RAMIPRIL [Interacting]
     Active Substance: RAMIPRIL
     Indication: Hypertension
     Dosage: 5 MILLIGRAM, BID, 5 MG 1/2 TABLET AT 8:00 AM, 1 TABLET AT 08:00 PM
     Dates: start: 20240322, end: 20240419
  10. RAMIPRIL [Interacting]
     Active Substance: RAMIPRIL
     Dosage: 5 MILLIGRAM, BID, 5 MG 1/2 TABLET AT 8:00 AM, 1 TABLET AT 08:00 PM
     Route: 048
     Dates: start: 20240322, end: 20240419
  11. RAMIPRIL [Interacting]
     Active Substance: RAMIPRIL
     Dosage: 5 MILLIGRAM, BID, 5 MG 1/2 TABLET AT 8:00 AM, 1 TABLET AT 08:00 PM
     Route: 048
     Dates: start: 20240322, end: 20240419
  12. RAMIPRIL [Interacting]
     Active Substance: RAMIPRIL
     Dosage: 5 MILLIGRAM, BID, 5 MG 1/2 TABLET AT 8:00 AM, 1 TABLET AT 08:00 PM
     Dates: start: 20240322, end: 20240419
  13. GLUCOPHAGE [Interacting]
     Active Substance: METFORMIN HYDROCHLORIDE
     Indication: Insulin-requiring type 2 diabetes mellitus
     Dosage: 1 GRAM, QD, 1 GRAM AT 8:00 PM
     Dates: start: 20240322, end: 20240419
  14. GLUCOPHAGE [Interacting]
     Active Substance: METFORMIN HYDROCHLORIDE
     Dosage: 1 GRAM, QD, 1 GRAM AT 8:00 PM
     Route: 048
     Dates: start: 20240322, end: 20240419
  15. GLUCOPHAGE [Interacting]
     Active Substance: METFORMIN HYDROCHLORIDE
     Dosage: 1 GRAM, QD, 1 GRAM AT 8:00 PM
     Route: 048
     Dates: start: 20240322, end: 20240419
  16. GLUCOPHAGE [Interacting]
     Active Substance: METFORMIN HYDROCHLORIDE
     Dosage: 1 GRAM, QD, 1 GRAM AT 8:00 PM
     Dates: start: 20240322, end: 20240419
  17. ALLOPURINOL [Interacting]
     Active Substance: ALLOPURINOL
     Indication: Hyperuricaemia
     Dosage: 300 MILLIGRAM, QD, 300 MG 1/2 TABLET AT 12:00 AM
     Dates: start: 20240322, end: 20240419
  18. ALLOPURINOL [Interacting]
     Active Substance: ALLOPURINOL
     Dosage: 300 MILLIGRAM, QD, 300 MG 1/2 TABLET AT 12:00 AM
     Route: 048
     Dates: start: 20240322, end: 20240419
  19. ALLOPURINOL [Interacting]
     Active Substance: ALLOPURINOL
     Dosage: 300 MILLIGRAM, QD, 300 MG 1/2 TABLET AT 12:00 AM
     Route: 048
     Dates: start: 20240322, end: 20240419
  20. ALLOPURINOL [Interacting]
     Active Substance: ALLOPURINOL
     Dosage: 300 MILLIGRAM, QD, 300 MG 1/2 TABLET AT 12:00 AM
     Dates: start: 20240322, end: 20240419
  21. CALCIFEDIOL [Interacting]
     Active Substance: CALCIFEDIOL
     Indication: Vitamin D deficiency
  22. CALCIFEDIOL [Interacting]
     Active Substance: CALCIFEDIOL
     Route: 048
  23. CALCIFEDIOL [Interacting]
     Active Substance: CALCIFEDIOL
     Route: 048
  24. CALCIFEDIOL [Interacting]
     Active Substance: CALCIFEDIOL
  25. CANRENOATE POTASSIUM [Interacting]
     Active Substance: CANRENOATE POTASSIUM
     Indication: Cardiac failure
     Dosage: 50 MILLIGRAM, QD, 50 MG AT 8:00 AM
     Dates: start: 20240322, end: 20240419
  26. CANRENOATE POTASSIUM [Interacting]
     Active Substance: CANRENOATE POTASSIUM
     Dosage: 50 MILLIGRAM, QD, 50 MG AT 8:00 AM
     Route: 048
     Dates: start: 20240322, end: 20240419
  27. CANRENOATE POTASSIUM [Interacting]
     Active Substance: CANRENOATE POTASSIUM
     Dosage: 50 MILLIGRAM, QD, 50 MG AT 8:00 AM
     Route: 048
     Dates: start: 20240322, end: 20240419
  28. CANRENOATE POTASSIUM [Interacting]
     Active Substance: CANRENOATE POTASSIUM
     Dosage: 50 MILLIGRAM, QD, 50 MG AT 8:00 AM
     Dates: start: 20240322, end: 20240419
  29. LASIX [Interacting]
     Active Substance: FUROSEMIDE
     Indication: Cardiac failure
  30. LASIX [Interacting]
     Active Substance: FUROSEMIDE
     Route: 048
  31. LASIX [Interacting]
     Active Substance: FUROSEMIDE
     Route: 048
  32. LASIX [Interacting]
     Active Substance: FUROSEMIDE
  33. BRINZOLAMIDE [Concomitant]
     Active Substance: BRINZOLAMIDE
     Indication: Glaucoma
     Dosage: UNK UNK, QD, 1 DROP AT 08:00 PM
  34. BRINZOLAMIDE [Concomitant]
     Active Substance: BRINZOLAMIDE
     Dosage: UNK UNK, QD, 1 DROP AT 08:00 PM
     Route: 061
  35. BRINZOLAMIDE [Concomitant]
     Active Substance: BRINZOLAMIDE
     Dosage: UNK UNK, QD, 1 DROP AT 08:00 PM
     Route: 061
  36. BRINZOLAMIDE [Concomitant]
     Active Substance: BRINZOLAMIDE
     Dosage: UNK UNK, QD, 1 DROP AT 08:00 PM
  37. ELIQUIS [Concomitant]
     Active Substance: APIXABAN
     Indication: Atrial fibrillation
     Dosage: 5 MILLIGRAM, BID, 5 MG AT 8:00 AND AT 08:00 PM
  38. ELIQUIS [Concomitant]
     Active Substance: APIXABAN
     Dosage: 5 MILLIGRAM, BID, 5 MG AT 8:00 AND AT 08:00 PM
     Route: 048
  39. ELIQUIS [Concomitant]
     Active Substance: APIXABAN
     Dosage: 5 MILLIGRAM, BID, 5 MG AT 8:00 AND AT 08:00 PM
     Route: 048
  40. ELIQUIS [Concomitant]
     Active Substance: APIXABAN
     Dosage: 5 MILLIGRAM, BID, 5 MG AT 8:00 AND AT 08:00 PM
  41. LEVOTHYROXINE SODIUM [Concomitant]
     Active Substance: LEVOTHYROXINE SODIUM
     Indication: Thyroidectomy
     Dosage: 150 MICROGRAM, QD, AT 6:00 AM
  42. LEVOTHYROXINE SODIUM [Concomitant]
     Active Substance: LEVOTHYROXINE SODIUM
     Dosage: 150 MICROGRAM, QD, AT 6:00 AM
     Route: 048
  43. LEVOTHYROXINE SODIUM [Concomitant]
     Active Substance: LEVOTHYROXINE SODIUM
     Dosage: 150 MICROGRAM, QD, AT 6:00 AM
     Route: 048
  44. LEVOTHYROXINE SODIUM [Concomitant]
     Active Substance: LEVOTHYROXINE SODIUM
     Dosage: 150 MICROGRAM, QD, AT 6:00 AM
  45. METOPROLOL [Concomitant]
     Active Substance: METOPROLOL
     Indication: Hypertension
     Dosage: 100 MILLIGRAM, BID, 100 MG 1/2 TABLET AT 8:00 AND AT 08:00 PM
  46. METOPROLOL [Concomitant]
     Active Substance: METOPROLOL
     Dosage: 100 MILLIGRAM, BID, 100 MG 1/2 TABLET AT 8:00 AND AT 08:00 PM
     Route: 048
  47. METOPROLOL [Concomitant]
     Active Substance: METOPROLOL
     Dosage: 100 MILLIGRAM, BID, 100 MG 1/2 TABLET AT 8:00 AND AT 08:00 PM
     Route: 048
  48. METOPROLOL [Concomitant]
     Active Substance: METOPROLOL
     Dosage: 100 MILLIGRAM, BID, 100 MG 1/2 TABLET AT 8:00 AND AT 08:00 PM
  49. PANTOPRAZOLE SODIUM [Concomitant]
     Active Substance: PANTOPRAZOLE SODIUM
     Indication: Prophylaxis
     Dosage: UNK UNK, QD, 1 TABLET AT 7:00 AM
  50. PANTOPRAZOLE SODIUM [Concomitant]
     Active Substance: PANTOPRAZOLE SODIUM
     Dosage: UNK UNK, QD, 1 TABLET AT 7:00 AM
     Route: 048
  51. PANTOPRAZOLE SODIUM [Concomitant]
     Active Substance: PANTOPRAZOLE SODIUM
     Dosage: UNK UNK, QD, 1 TABLET AT 7:00 AM
     Route: 048
  52. PANTOPRAZOLE SODIUM [Concomitant]
     Active Substance: PANTOPRAZOLE SODIUM
     Dosage: UNK UNK, QD, 1 TABLET AT 7:00 AM

REACTIONS (2)
  - Vomiting [Recovered/Resolved]
  - Drug interaction [Recovered/Resolved]

NARRATIVE: CASE EVENT DATE: 20240322
